FAERS Safety Report 7738712-4 (Version None)
Quarter: 2011Q3

REPORT INFORMATION
  Report Type: 
  Country: None (occurrence: None)
  Receive Date: 20110908
  Receipt Date: 20110907
  Transmission Date: 20111222
  Serious: Yes (Other)
  Sender: FDA-Public Use
  Company Number: US-PFIZER INC-2011143872

PATIENT
  Sex: Female

DRUGS (1)
  1. CHANTIX [Suspect]
     Indication: SMOKING CESSATION THERAPY
     Dosage: STARTER PACK AND TWO CONTINUING PACKS
     Dates: start: 20090814, end: 20100214

REACTIONS (4)
  - INSOMNIA [None]
  - VIOLENCE-RELATED SYMPTOM [None]
  - DEPRESSION [None]
  - ANXIETY [None]
